FAERS Safety Report 14290189 (Version 1)
Quarter: 2017Q4

REPORT INFORMATION
  Report Type: Spontaneous
  Country: JP (occurrence: JP)
  Receive Date: 20171215
  Receipt Date: 20171215
  Transmission Date: 20180321
  Serious: Yes (Other)
  Sender: FDA-Public Use
  Company Number: JP-EISAI MEDICAL RESEARCH-EC-2017-033434

PATIENT
  Sex: Female

DRUGS (2)
  1. FLUITRAN [Suspect]
     Active Substance: TRICHLORMETHIAZIDE
     Indication: HYPERTENSION
     Dosage: UNKNOWN
     Route: 048
     Dates: start: 20171117
  2. LENVIMA [Suspect]
     Active Substance: LENVATINIB
     Indication: FOLLICULAR THYROID CANCER
     Route: 048
     Dates: start: 20171113, end: 20171209

REACTIONS (4)
  - Delirium [Not Recovered/Not Resolved]
  - Hypertension [Recovering/Resolving]
  - Thirst [Recovered/Resolved]
  - Palmar-plantar erythrodysaesthesia syndrome [Unknown]

NARRATIVE: CASE EVENT DATE: 20171115
